FAERS Safety Report 7609178-X (Version None)
Quarter: 2011Q3

REPORT INFORMATION
  Report Type: 
  Country: None (occurrence: None)
  Receive Date: 20110713
  Receipt Date: 20110713
  Transmission Date: 20111222
  Serious: Yes (Hospitalization)
  Sender: FDA-Public Use
  Company Number: None

PATIENT
  Sex: Female
  Weight: 73.9363 kg

DRUGS (1)
  1. RAD001 EVEROLIMUS [Suspect]
     Indication: BREAST CANCER
     Dosage: 5MG PO QD
     Route: 048
     Dates: start: 20110316, end: 20110531

REACTIONS (3)
  - PNEUMONIA [None]
  - BREAST CANCER [None]
  - MALIGNANT PLEURAL EFFUSION [None]
